FAERS Safety Report 8519616-6 (Version None)
Quarter: 2012Q3

REPORT INFORMATION
  Report Type: 
  Country: None (occurrence: None)
  Receive Date: 20120718
  Receipt Date: 20120710
  Transmission Date: 20120928
  Serious: Yes (Hospitalization)
  Sender: FDA-Public Use
  Company Number: DE-ABBOTT-12P-062-0954713-00

PATIENT
  Sex: Male

DRUGS (4)
  1. BISOPROLOL FUMARATE [Concomitant]
     Indication: PRODUCT USED FOR UNKNOWN INDICATION
  2. METHOTREXATE [Concomitant]
     Indication: PRODUCT USED FOR UNKNOWN INDICATION
  3. HUMIRA [Suspect]
     Indication: RHEUMATOID ARTHRITIS
     Route: 058
     Dates: start: 20100802, end: 20120618
  4. ANTIDIABETIC [Concomitant]
     Indication: DIABETES MELLITUS

REACTIONS (2)
  - RESPIRATORY DISORDER [None]
  - PULMONARY OEDEMA [None]
